FAERS Safety Report 17545163 (Version 1)
Quarter: 2020Q1

REPORT INFORMATION
  Report Type: Spontaneous
  Country: US (occurrence: US)
  Receive Date: 20200313
  Receipt Date: 20200313
  Transmission Date: 20200409
  Serious: Yes (Other)
  Sender: FDA-Public Use
  Company Number: None

PATIENT
  Age: 9 Year
  Sex: Male
  Weight: 23.85 kg

DRUGS (4)
  1. MULTIVITAMIN [Concomitant]
     Active Substance: VITAMINS
  2. CLARITIN -2 CHILDREN^S CHEWABLES [Concomitant]
  3. SINGULAIR [Suspect]
     Active Substance: MONTELUKAST SODIUM
     Indication: ASTHMA
     Dosage: ?          QUANTITY:1 TABLET(S);?
     Route: 048
     Dates: start: 20150501, end: 20200307
  4. QVAR-40MCG [Concomitant]

REACTIONS (5)
  - Oppositional defiant disorder [None]
  - Sleep talking [None]
  - Aggression [None]
  - Anxiety [None]
  - Somnambulism [None]

NARRATIVE: CASE EVENT DATE: 20200307
